FAERS Safety Report 24138811 (Version 1)
Quarter: 2024Q3

REPORT INFORMATION
  Report Type: Spontaneous
  Country: IT (occurrence: IT)
  Receive Date: 20240725
  Receipt Date: 20240725
  Transmission Date: 20241017
  Serious: Yes (Hospitalization)
  Sender: VERTEX
  Company Number: IT-VERTEX PHARMACEUTICALS-2024-011903

PATIENT

DRUGS (2)
  1. ELEXACAFTOR\IVACAFTOR\TEZACAFTOR [Suspect]
     Active Substance: ELEXACAFTOR\IVACAFTOR\TEZACAFTOR
     Indication: Cystic fibrosis
     Dosage: UNK, QD
     Route: 048
     Dates: start: 201910, end: 202312
  2. KALYDECO [Suspect]
     Active Substance: IVACAFTOR
     Indication: Cystic fibrosis
     Dosage: UNKNOWN
     Route: 048
     Dates: start: 201910, end: 202312

REACTIONS (12)
  - Hypertransaminasaemia [Unknown]
  - Urticaria [Unknown]
  - Hypertension [Unknown]
  - Abdominal pain upper [Unknown]
  - Blood creatine phosphokinase increased [Unknown]
  - Headache [Unknown]
  - Gilbert^s syndrome [Unknown]
  - Neuropsychological symptoms [Unknown]
  - Ear infection [Unknown]
  - Testicular pain [Unknown]
  - Pyrexia [Unknown]
  - Intussusception [Unknown]
